FAERS Safety Report 4390487-5 (Version None)
Quarter: 2004Q2

REPORT INFORMATION
  Report Type: 
  Country: None (occurrence: None)
  Receive Date: 20040630
  Receipt Date: 20040615
  Transmission Date: 20050107
  Serious: Yes (Hospitalization)
  Sender: FDA-Public Use
  Company Number: 171211

PATIENT
  Age: 71 Year
  Sex: Female
  Weight: 55.7924 kg

DRUGS (8)
  1. AVONEX [Suspect]
     Indication: MULTIPLE SCLEROSIS
     Dosage: 30 MCG QW IM
     Route: 030
     Dates: start: 20000901, end: 20020601
  2. AVONEX [Suspect]
     Indication: MULTIPLE SCLEROSIS
     Dosage: 30 MCG QW IM
     Route: 030
     Dates: start: 20021201
  3. NORTRIPTYLINE HCL [Concomitant]
  4. NEURONTIN [Concomitant]
  5. PREMARIN [Concomitant]
  6. BACLOFEN [Concomitant]
  7. LANOXIN [Concomitant]
  8. MULTI-VITAMINS [Concomitant]

REACTIONS (9)
  - ASTHENIA [None]
  - CONFUSIONAL STATE [None]
  - CONVERSION DISORDER [None]
  - HALLUCINATION [None]
  - HEADACHE [None]
  - MEMORY IMPAIRMENT [None]
  - THERAPEUTIC AGENT TOXICITY [None]
  - TREMOR [None]
  - WEIGHT DECREASED [None]
